FAERS Safety Report 6473111-7 (Version None)
Quarter: 2009Q4

REPORT INFORMATION
  Report Type: 
  Country: None (occurrence: None)
  Receive Date: 20091204
  Receipt Date: 20080429
  Transmission Date: 20100525
  Serious: Yes (Other)
  Sender: FDA-Public Use
  Company Number: US-ELI_LILLY_AND_COMPANY-US200804007212

PATIENT
  Sex: Male

DRUGS (4)
  1. ZYPREXA [Suspect]
     Indication: MAJOR DEPRESSION
     Dosage: 2.5 MG, UNK
     Dates: start: 20080318
  2. ZYPREXA [Suspect]
     Dosage: 5 MG, UNK
     Dates: start: 20080408
  3. ZYPREXA [Suspect]
     Dosage: 7.5 MG, UNK
     Dates: start: 20080422
  4. LUVOX [Concomitant]
     Dates: start: 19980101

REACTIONS (3)
  - HAEMATURIA [None]
  - HAEMOPTYSIS [None]
  - HEPATITIS FULMINANT [None]
